FAERS Safety Report 6100831-6 (Version None)
Quarter: 2009Q1

REPORT INFORMATION
  Report Type: 
  Country: None (occurrence: None)
  Receive Date: 20090303
  Receipt Date: 20080123
  Transmission Date: 20090719
  Serious: Yes (Hospitalization)
  Sender: FDA-Public Use
  Company Number: DE-GENENTECH-255440

PATIENT
  Sex: Male
  Weight: 88.8 kg

DRUGS (11)
  1. RITUXIMAB [Suspect]
     Indication: NON-HODGKIN'S LYMPHOMA
     Dosage: 375 MG/M2, UNK
     Route: 042
     Dates: start: 20070709
  2. MITOXANTRONE [Suspect]
     Indication: NON-HODGKIN'S LYMPHOMA
     Dosage: 8 MG/M2, UNK
     Route: 042
     Dates: start: 20070710
  3. CHLORAMBUCIL [Suspect]
     Indication: NON-HODGKIN'S LYMPHOMA
     Dosage: 3 MG/M2, UNK
     Route: 048
     Dates: start: 20070710
  4. PREDNISONE [Suspect]
     Indication: NON-HODGKIN'S LYMPHOMA
     Dosage: 25 MG/M2, UNK
     Route: 048
     Dates: start: 20070628
  5. MICARDIS [Concomitant]
     Indication: DRUG USE FOR UNKNOWN INDICATION
  6. PK-MERZ [Concomitant]
     Indication: DRUG USE FOR UNKNOWN INDICATION
  7. CARBIDOPA AND LEVODOPA [Concomitant]
     Indication: DRUG USE FOR UNKNOWN INDICATION
  8. CONCOR 5 [Concomitant]
     Indication: DRUG USE FOR UNKNOWN INDICATION
  9. MADOPAR [Concomitant]
     Indication: DRUG USE FOR UNKNOWN INDICATION
  10. TASMAR [Concomitant]
     Indication: DRUG USE FOR UNKNOWN INDICATION
  11. PANTOZOL [Concomitant]
     Indication: DRUG USE FOR UNKNOWN INDICATION

REACTIONS (16)
  - AORTIC ARTERIOSCLEROSIS [None]
  - BREATH SOUNDS ABNORMAL [None]
  - CARDIOMEGALY [None]
  - CONDITION AGGRAVATED [None]
  - DEEP VEIN THROMBOSIS [None]
  - DEHYDRATION [None]
  - FALL [None]
  - FEMORAL HERNIA [None]
  - GENERAL PHYSICAL HEALTH DETERIORATION [None]
  - HALLUCINATION [None]
  - HEPATOSPLENOMEGALY [None]
  - LISTLESS [None]
  - PARKINSON'S DISEASE [None]
  - PNEUMONIA [None]
  - PYREXIA [None]
  - TACHYPNOEA [None]
